FAERS Safety Report 14243269 (Version 1)
Quarter: 2017Q4

REPORT INFORMATION
  Report Type: Spontaneous
  Country: US (occurrence: US)
  Receive Date: 20171201
  Receipt Date: 20171201
  Transmission Date: 20180321
  Serious: No
  Sender: FDA-Public Use
  Company Number: US-TEVA-727163ACC

PATIENT
  Age: 66 Year
  Sex: Female
  Weight: 46.76 kg

DRUGS (1)
  1. MUPIROCIN. [Suspect]
     Active Substance: MUPIROCIN
     Indication: WOUND
     Dates: start: 20161025

REACTIONS (2)
  - Urticaria [Unknown]
  - Expired product administered [Unknown]

NARRATIVE: CASE EVENT DATE: 20161025
